FAERS Safety Report 5431447-2 (Version None)
Quarter: 2007Q3

REPORT INFORMATION
  Report Type: 
  Country: None (occurrence: None)
  Receive Date: 20070830
  Receipt Date: 20070620
  Transmission Date: 20080115
  Serious: No
  Sender: FDA-Public Use
  Company Number: A0658956A

PATIENT
  Age: 43 Year
  Sex: Female

DRUGS (13)
  1. WELLBUTRIN XL [Suspect]
     Indication: DEPRESSION
     Dosage: 300MG PER DAY
     Route: 048
     Dates: start: 20070123
  2. BACLOFEN [Concomitant]
  3. ACYCLOVIR [Concomitant]
  4. CYMBALTA [Concomitant]
  5. NEXIUM [Concomitant]
  6. ESTRADIOL [Concomitant]
  7. METHADONE HCL [Concomitant]
  8. TRAZODONE HCL [Concomitant]
  9. TIZANIDINE HCL [Concomitant]
  10. ALPRAZOLAM [Concomitant]
  11. PROVIGIL [Concomitant]
  12. RANITIDINE [Concomitant]
  13. ADVIL LIQUI-GELS [Concomitant]

REACTIONS (3)
  - CRYING [None]
  - DEPRESSION [None]
  - NEGATIVE THOUGHTS [None]
